FAERS Safety Report 4544809-2 (Version None)
Quarter: 2005Q1

REPORT INFORMATION
  Report Type: 
  Country: None (occurrence: None)
  Receive Date: 20050104
  Receipt Date: 20041221
  Transmission Date: 20050727
  Serious: Yes (Hospitalization, Disabling)
  Sender: FDA-Public Use
  Company Number: MK200412-0343-1

PATIENT
  Age: 81 Year
  Sex: Male

DRUGS (9)
  1. MORPHINE SULFATE [Suspect]
     Dosage: 1 MG
  2. FENTANYL [Concomitant]
  3. THIAMYLAL SODIUM [Concomitant]
  4. ROCURONIUM [Concomitant]
  5. BUPIVACAINE [Concomitant]
  6. ISOFLURANE [Concomitant]
  7. OXYGEN [Concomitant]
  8. EPHEDRINE SUL CAP [Concomitant]
  9. LACTATED RINGER'S SOLUTION AND LIDOCAINE [Concomitant]

REACTIONS (16)
  - AIR EMBOLISM [None]
  - AREFLEXIA [None]
  - ASTHENIA [None]
  - BLOOD PRESSURE DECREASED [None]
  - COMPUTERISED TOMOGRAM ABNORMAL [None]
  - DEPRESSED LEVEL OF CONSCIOUSNESS [None]
  - FAECAL INCONTINENCE [None]
  - HYPOAESTHESIA [None]
  - NUCLEAR MAGNETIC RESONANCE IMAGING ABNORMAL [None]
  - NUCLEAR MAGNETIC RESONANCE IMAGING BRAIN ABNORMAL [None]
  - PARALYSIS FLACCID [None]
  - PARAPLEGIA [None]
  - POST PROCEDURAL COMPLICATION [None]
  - PROCEDURAL COMPLICATION [None]
  - SENSORY LOSS [None]
  - URINARY INCONTINENCE [None]
